FAERS Safety Report 6191467-X (Version None)
Quarter: 2009Q2

REPORT INFORMATION
  Report Type: 
  Country: None (occurrence: None)
  Receive Date: 20090515
  Receipt Date: 20090506
  Transmission Date: 20091009
  Serious: Yes (Other)
  Sender: FDA-Public Use
  Company Number: AT-ELI_LILLY_AND_COMPANY-AT200903002233

PATIENT
  Age: 27 Year
  Sex: Male

DRUGS (1)
  1. OLANZAPINE [Suspect]
     Indication: SCHIZOPHRENIA
     Dosage: 10 MG, DAILY (1/D)
     Route: 048
     Dates: start: 20030101, end: 20090101

REACTIONS (2)
  - AMAUROSIS FUGAX [None]
  - RETINAL ARTERY THROMBOSIS [None]
